FAERS Safety Report 23655110 (Version 2)
Quarter: 2024Q3

REPORT INFORMATION
  Report Type: Spontaneous
  Country: NO (occurrence: NO)
  Receive Date: 20240320
  Receipt Date: 20240708
  Transmission Date: 20241016
  Serious: Yes (Other)
  Sender: MYLAN
  Company Number: NO-TAKEDA-2024TUS019087

PATIENT

DRUGS (4)
  1. LENALIDOMIDE [Suspect]
     Active Substance: LENALIDOMIDE
     Indication: Plasma cell myeloma
     Dosage: 25 MILLIGRAM, DAYS 1-21 DURING ALL CYCLES
     Route: 048
  2. VELCADE [Suspect]
     Active Substance: BORTEZOMIB
     Indication: Plasma cell myeloma
     Dosage: 1.3 MILLIGRAM/SQ. METER, DAYS 1, 8, 15 DURING CYCLE 1-8
     Route: 058
  3. DEXAMETHASONE [Suspect]
     Active Substance: DEXAMETHASONE
     Indication: Plasma cell myeloma
     Dosage: 20 MILLIGRAM, DAYS 1, 8, 15, 22 ONLY FOR THE FIRST 2 CYCLES
     Route: 048
  4. ISATUXIMAB [Suspect]
     Active Substance: ISATUXIMAB
     Indication: Plasma cell myeloma
     Dosage: 10 MILLIGRAM/KILOGRAM, Q2W, DAYS 1, 8, 15, 22 DURING CYCLE 1, Q2W CYCLE 2-18
     Route: 042

REACTIONS (1)
  - Plasma cell myeloma [Unknown]
